FAERS Safety Report 21124365 (Version 1)
Quarter: 2022Q3

REPORT INFORMATION
  Report Type: Spontaneous
  Country: ES (occurrence: ES)
  Receive Date: 20220725
  Receipt Date: 20220725
  Transmission Date: 20221027
  Serious: Yes (Hospitalization)
  Sender: FDA-Public Use
  Company Number: ES-SUN PHARMACEUTICAL INDUSTRIES LTD-2022RR-345844

PATIENT
  Age: 8 Year
  Sex: Female
  Weight: 34.5 kg

DRUGS (13)
  1. LEVETIRACETAM [Suspect]
     Active Substance: LEVETIRACETAM
     Indication: Seizure prophylaxis
     Dosage: 175 MILLIGRAM, BID, 10MG/KG/DAY
     Route: 065
     Dates: start: 20220603
  2. METRONIDAZOLE [Suspect]
     Active Substance: METRONIDAZOLE
     Indication: Sinusitis
     Dosage: 350 MILLIGRAM, TID, 30 MG/KG DAY
     Route: 065
     Dates: start: 20220602
  3. METAMIZOLE SODIUM [Suspect]
     Active Substance: METAMIZOLE SODIUM
     Indication: Pain
     Dosage: 1 GRAM, 1DOSE/AS NECESSARY
     Route: 065
     Dates: start: 20220529
  4. CEFOTAXIME [Suspect]
     Active Substance: CEFOTAXIME SODIUM
     Indication: Sinusitis
     Dosage: 2.6 GRAM, QID, 300MG/KG/DAY
     Route: 065
     Dates: start: 20220602
  5. CEFOTAXIME [Suspect]
     Active Substance: CEFOTAXIME SODIUM
     Dosage: 1.7 GRAM, QID, 200MG/KGDAY
     Route: 065
     Dates: start: 20220528, end: 20220601
  6. UTABON ADULTS 0.5 mg/ml NASAL SPRAY SOLUTION [Concomitant]
     Indication: Product used for unknown indication
     Dosage: 1 /12H
     Route: 065
  7. FLIXONASE 400 micrograms NASAL DROPS, SUSPENSION [Concomitant]
     Indication: Product used for unknown indication
     Dosage: 1 DOSE/12H
     Route: 065
     Dates: start: 20220528
  8. URBASON 40 mg POWDER AND SOLVENT FOR SOLUTION FOR INJECTION [Concomitant]
     Indication: Sinusitis
     Dosage: 20 MILLIGRAM, DAILY
     Route: 065
     Dates: start: 20220606, end: 20220607
  9. URBASON 40 mg POWDER AND SOLVENT FOR SOLUTION FOR INJECTION [Concomitant]
     Dosage: 15 MILLIGRAM, DAILY
     Route: 065
     Dates: start: 20220608, end: 20220608
  10. URBASON 40 mg POWDER AND SOLVENT FOR SOLUTION FOR INJECTION [Concomitant]
     Dosage: 10 MILLIGRAM, DAILY
     Route: 065
     Dates: start: 20220609, end: 20220610
  11. URBASON 40 mg POWDER AND SOLVENT FOR SOLUTION FOR INJECTION [Concomitant]
     Dosage: 25 MILLIGRAM, DAILY
     Route: 065
     Dates: start: 20220605, end: 20220605
  12. URBASON 40 mg POWDER AND SOLVENT FOR SOLUTION FOR INJECTION [Concomitant]
     Dosage: 30 MILLIGRAM, DAILY
     Route: 065
     Dates: start: 20220604, end: 20220604
  13. URBASON 40 mg POWDER AND SOLVENT FOR SOLUTION FOR INJECTION [Concomitant]
     Dosage: 40 MILLIGRAM, DAILY
     Route: 065
     Dates: start: 20220528, end: 20220603

REACTIONS (1)
  - Neutropenia [Unknown]

NARRATIVE: CASE EVENT DATE: 20220616
